FAERS Safety Report 8743240 (Version 4)
Quarter: 2013Q1

REPORT INFORMATION
  Report Type: Spontaneous
  Country: FR (occurrence: FR)
  Receive Date: 20120824
  Receipt Date: 20130327
  Transmission Date: 20140127
  Serious: Yes (Hospitalization)
  Sender: FDA-Public Use
  Company Number: FR-GLAXOSMITHKLINE-B0823133A

PATIENT
  Age: 65 Year
  Sex: Male

DRUGS (4)
  1. ZOPHREN [Suspect]
     Indication: PREMEDICATION
     Dosage: 8MG SINGLE DOSE
     Route: 042
     Dates: start: 20120807, end: 20120807
  2. ELOXATINE [Suspect]
     Indication: COLORECTAL CANCER
     Dosage: 160MG CYCLIC
     Route: 042
     Dates: start: 20120807, end: 20120807
  3. PLITICAN [Suspect]
     Indication: PREMEDICATION
     Dosage: 100MG SINGLE DOSE
     Route: 042
     Dates: start: 20120807, end: 20120807
  4. METHYLPREDNISOLONE [Suspect]
     Indication: PREMEDICATION
     Dosage: 40MG SINGLE DOSE
     Route: 042
     Dates: start: 20120807, end: 20120807

REACTIONS (4)
  - Pruritus [Recovered/Resolved]
  - Burning sensation [Recovered/Resolved]
  - Erythema [Recovered/Resolved]
  - Laryngeal dyspnoea [Recovered/Resolved]
